FAERS Safety Report 13589372 (Version 1)
Quarter: 2017Q2

REPORT INFORMATION
  Report Type: Report from Study
  Country: US (occurrence: US)
  Receive Date: 20170529
  Receipt Date: 20170529
  Transmission Date: 20170830
  Serious: Yes (Other)
  Sender: FDA-Public Use
  Company Number: US-AMGEN-USASL2017081346

PATIENT
  Age: 56 Year
  Sex: Female

DRUGS (1)
  1. ENBREL [Suspect]
     Active Substance: ETANERCEPT
     Indication: RHEUMATOID ARTHRITIS
     Dosage: 50 MG, QWK
     Route: 058
     Dates: start: 20170516

REACTIONS (4)
  - Pulmonary congestion [Unknown]
  - Eye swelling [Unknown]
  - Sneezing [Unknown]
  - Eye discharge [Unknown]

NARRATIVE: CASE EVENT DATE: 20170519
